FAERS Safety Report 8349969-3 (Version None)
Quarter: 2012Q2

REPORT INFORMATION
  Report Type: 
  Country: None (occurrence: None)
  Receive Date: 20120510
  Receipt Date: 20120503
  Transmission Date: 20120825
  Serious: No
  Sender: FDA-Public Use
  Company Number: US-B.I. PHARMACEUTICALS,INC./RIDGEFIELD-2012-BP-10124BP

PATIENT
  Sex: Female

DRUGS (10)
  1. ATENOLOL [Concomitant]
     Indication: BLOOD PRESSURE
     Dosage: 50 MG
  2. RESTASIS [Concomitant]
  3. LIDODERM [Concomitant]
     Indication: BACK PAIN
  4. RANITIDINE [Concomitant]
     Indication: ULCER
     Dosage: 300 MG
  5. CELEBREX [Concomitant]
     Dosage: 200 MG
  6. FLOMAX [Suspect]
  7. ASPIRIN [Concomitant]
     Indication: CARDIAC DISORDER
     Dosage: 81 MG
  8. PANTOPRAZOLE [Concomitant]
     Indication: GASTROOESOPHAGEAL REFLUX DISEASE
     Dosage: 40 MG
  9. HYDROCODONE BITARTRATE [Concomitant]
     Indication: PAIN
  10. OXYBUTYNIN [Concomitant]
     Indication: BLADDER DISORDER
     Dosage: 15 MG

REACTIONS (1)
  - SYNCOPE [None]
